FAERS Safety Report 9129525 (Version 2)
Quarter: 2013Q1

REPORT INFORMATION
  Report Type: Spontaneous
  Country: DE (occurrence: DE)
  Receive Date: 20130228
  Receipt Date: 20130319
  Transmission Date: 20140127
  Serious: Yes (Other)
  Sender: FDA-Public Use
  Company Number: DE-BRISTOL-MYERS SQUIBB COMPANY-16960155

PATIENT
  Age: 69 Year
  Sex: Female
  Weight: 63.5 kg

DRUGS (8)
  1. SPRYCEL [Suspect]
     Indication: CHRONIC MYELOID LEUKAEMIA
     Route: 048
     Dates: start: 20120401, end: 20120723
  2. DIGIMERCK [Concomitant]
     Route: 048
  3. TOREM [Concomitant]
     Route: 048
  4. AMLODIPINE [Concomitant]
     Route: 048
  5. DELIX [Concomitant]
  6. SIMVAHEXAL [Concomitant]
  7. PANTOZOL [Concomitant]
     Dosage: 1DF=40 UNITS NOT SPECIFIED
  8. MARCUMAR [Concomitant]

REACTIONS (12)
  - Pulmonary hypertension [Recovered/Resolved]
  - Coronary artery disease [Unknown]
  - Cardiomyopathy [Unknown]
  - Endocardial fibrosis [Unknown]
  - Cardiac failure [Unknown]
  - Leukocytosis [Unknown]
  - Pleural effusion [Recovered/Resolved]
  - Thrombocytopenia [Unknown]
  - Arthralgia [Unknown]
  - Dry skin [Unknown]
  - Pruritus [Unknown]
  - Rash [Unknown]
